FAERS Safety Report 21583519 (Version 2)
Quarter: 2022Q4

REPORT INFORMATION
  Report Type: Spontaneous
  Country: DE (occurrence: DE)
  Receive Date: 20221111
  Receipt Date: 20221203
  Transmission Date: 20230113
  Serious: Yes (Other)
  Sender: FDA-Public Use
  Company Number: None

PATIENT
  Sex: Male
  Weight: 79 kg

DRUGS (2)
  1. FLUVASTATIN [Suspect]
     Active Substance: FLUVASTATIN SODIUM
     Indication: Low density lipoprotein increased
     Dosage: 20 MG, QD (0-0-1)
     Route: 048
     Dates: start: 20220930, end: 20221003
  2. COLESEVELAM HYDROCHLORIDE [Suspect]
     Active Substance: COLESEVELAM HYDROCHLORIDE
     Indication: Low density lipoprotein increased
     Dosage: 6 DOSAGE FORM, QD (625 MG 2-2-2)
     Route: 048
     Dates: start: 20220908, end: 20220917

REACTIONS (1)
  - Faecaloma [Recovered/Resolved]
